FAERS Safety Report 6095741-7 (Version None)
Quarter: 2009Q1

REPORT INFORMATION
  Report Type: 
  Country: None (occurrence: None)
  Receive Date: 20090227
  Receipt Date: 20080606
  Transmission Date: 20090719
  Serious: Yes (Other)
  Sender: FDA-Public Use
  Company Number: A0731741A

PATIENT
  Age: 44 Year
  Sex: Female

DRUGS (10)
  1. LAMICTAL [Suspect]
     Indication: BIPOLAR DISORDER
     Dosage: 50MG TWICE PER DAY
     Route: 048
     Dates: start: 20070501, end: 20080511
  2. ASTELIN [Concomitant]
  3. ZYRTEC-D 12 HOUR [Concomitant]
  4. PROZAC [Concomitant]
  5. FLONASE [Concomitant]
  6. PRILOSEC [Concomitant]
  7. FIORICET [Concomitant]
  8. LORAZEPAM [Concomitant]
  9. ADVIL [Concomitant]
  10. RETIN-A [Concomitant]

REACTIONS (3)
  - ANGIOEDEMA [None]
  - PRURITUS [None]
  - URTICARIA [None]
